FAERS Safety Report 9576203 (Version 1)
Quarter: 2013Q4

REPORT INFORMATION
  Report Type: Spontaneous
  Country: US (occurrence: US)
  Receive Date: 20131001
  Receipt Date: 20131001
  Transmission Date: 20140711
  Serious: No
  Sender: FDA-Public Use
  Company Number: US-AMGEN-USASP2013001557

PATIENT
  Sex: Male
  Weight: 124.72 kg

DRUGS (6)
  1. ENBREL [Suspect]
     Indication: PRODUCT USED FOR UNKNOWN INDICATION
     Dosage: 25 MG, QWK
     Route: 058
  2. HUMIRA [Concomitant]
     Dosage: 40 MG/ 0.8, UNK
  3. FISH OIL [Concomitant]
     Dosage: UNK
  4. MULTIVITAMINS, PLAIN [Concomitant]
     Dosage: UNK
  5. FOLIC ACID [Concomitant]
     Dosage: UNK
  6. TESTOSTERON                        /00103101/ [Concomitant]
     Dosage: UNK

REACTIONS (2)
  - Pruritus [Recovered/Resolved]
  - Rash [Recovered/Resolved]
